FAERS Safety Report 9238563 (Version 2)
Quarter: 2013Q2

REPORT INFORMATION
  Report Type: Spontaneous
  Country: JP (occurrence: JP)
  Receive Date: 20130418
  Receipt Date: 20130613
  Transmission Date: 20140414
  Serious: Yes (Hospitalization)
  Sender: FDA-Public Use
  Company Number: JP-ASTELLAS-2013JP004979

PATIENT
  Age: 67 Year
  Sex: Female
  Weight: 49.7 kg

DRUGS (7)
  1. PROGRAF [Suspect]
     Indication: MYASTHENIA GRAVIS
     Dosage: 3 MG, UID/QD
     Route: 048
     Dates: start: 20121114
  2. PREDONINE /00016201/ [Suspect]
     Indication: MYASTHENIA GRAVIS
     Dosage: UNK
     Route: 048
     Dates: start: 20120627, end: 20121213
  3. MESTINON [Concomitant]
     Indication: MYASTHENIA GRAVIS
     Dosage: 60 MG, TID
     Route: 048
     Dates: start: 20120623, end: 20130212
  4. MESTINON [Concomitant]
     Dosage: 60 MG, BID
     Route: 048
     Dates: start: 20130213, end: 20130312
  5. FOSAMAC [Concomitant]
     Indication: OSTEOPOROSIS
     Dosage: 35 MG, WEEKLY
     Route: 048
     Dates: start: 20120822, end: 20121205
  6. CRAVIT [Concomitant]
     Indication: INFECTION
     Dosage: UNK
     Route: 047
     Dates: start: 20120822
  7. HYALEIN [Concomitant]
     Indication: MYASTHENIA GRAVIS
     Dosage: UNK
     Route: 047
     Dates: start: 20130109

REACTIONS (1)
  - Glycosylated haemoglobin increased [Recovered/Resolved]
